FAERS Safety Report 10661377 (Version 3)
Quarter: 2015Q1

REPORT INFORMATION
  Report Type: Spontaneous
  Country: US (occurrence: US)
  Receive Date: 20141218
  Receipt Date: 20150128
  Transmission Date: 20150720
  Serious: No
  Sender: FDA-Public Use
  Company Number: US-009507513-1110USA03610

PATIENT
  Sex: Male

DRUGS (2)
  1. ATENOLOL. [Concomitant]
     Active Substance: ATENOLOL
     Indication: PALPITATIONS
     Dosage: UNK
     Dates: start: 200702, end: 2009
  2. PROPECIA [Suspect]
     Active Substance: FINASTERIDE
     Indication: ANDROGENETIC ALOPECIA
     Dosage: 1 MG, QD
     Route: 048
     Dates: start: 20080208, end: 20081101

REACTIONS (15)
  - Depression [Unknown]
  - Cognitive disorder [Unknown]
  - Ejaculation disorder [Unknown]
  - Panic attack [Unknown]
  - Ejaculation failure [Unknown]
  - Libido decreased [Unknown]
  - Insomnia [Unknown]
  - Anxiety [Unknown]
  - Liver function test abnormal [Unknown]
  - Loss of libido [Unknown]
  - Tremor [Recovering/Resolving]
  - Dizziness [Unknown]
  - Erectile dysfunction [Unknown]
  - Sexual dysfunction [Unknown]
  - Appetite disorder [Recovering/Resolving]

NARRATIVE: CASE EVENT DATE: 2008
